FAERS Safety Report 8463551-9 (Version None)
Quarter: 2012Q2

REPORT INFORMATION
  Report Type: 
  Country: None (occurrence: None)
  Receive Date: 20120625
  Receipt Date: 20120615
  Transmission Date: 20120825
  Serious: Yes (Other)
  Sender: FDA-Public Use
  Company Number: US-JNJFOC-20120608287

PATIENT
  Sex: Female
  Weight: 72.58 kg

DRUGS (5)
  1. XARELTO [Suspect]
     Indication: CEREBROVASCULAR ACCIDENT PROPHYLAXIS
     Route: 048
     Dates: start: 20120101
  2. GLIPIZIDE [Concomitant]
     Indication: DIABETES MELLITUS
     Dates: start: 20020101
  3. XARELTO [Suspect]
     Indication: ATRIAL FIBRILLATION
     Route: 048
     Dates: start: 20120615
  4. XARELTO [Suspect]
     Route: 048
     Dates: start: 20120101
  5. XARELTO [Suspect]
     Route: 048
     Dates: start: 20120615

REACTIONS (3)
  - HEART RATE INCREASED [None]
  - HEART RATE ABNORMAL [None]
  - DRUG ADMINISTRATION ERROR [None]
